FAERS Safety Report 16940810 (Version 1)
Quarter: 2019Q4

REPORT INFORMATION
  Report Type: Spontaneous
  Country: EG (occurrence: EG)
  Receive Date: 20191021
  Receipt Date: 20191021
  Transmission Date: 20200122
  Serious: No
  Sender: FDA-Public Use
  Company Number: EG-DENTSPLY-2019SCDP000573

PATIENT

DRUGS (1)
  1. LIDOCAINE. [Suspect]
     Active Substance: LIDOCAINE
     Indication: ANALGESIC THERAPY
     Dosage: LIDOCAINE 2 PERCENT GEL LOCALLY PLUS 10 MG NORMAL SALINE
     Route: 040

REACTIONS (1)
  - Drug ineffective [Unknown]
